FAERS Safety Report 15845605 (Version 1)
Quarter: 2019Q1

REPORT INFORMATION
  Report Type: Spontaneous
  Country: US (occurrence: US)
  Receive Date: 20190119
  Receipt Date: 20190119
  Transmission Date: 20190417
  Serious: Yes (Hospitalization, Disabling, Other)
  Sender: FDA-Public Use
  Company Number: US-TORRENT-00007481

PATIENT
  Age: 64 Year
  Weight: 90 kg

DRUGS (7)
  1. METRONIDAZOLE. [Concomitant]
     Active Substance: METRONIDAZOLE
     Indication: INFECTION
     Dosage: METRONIDAZOLE 500 MG  THREE TIMES A DAY
  2. BACLOFEN. [Concomitant]
     Active Substance: BACLOFEN
     Indication: EYE DISORDER
     Dosage: BACLOFEN THREE TIMES A DAY
  3. GABAPENTIN. [Concomitant]
     Active Substance: GABAPENTIN
     Indication: NEUROPATHY PERIPHERAL
     Dosage: GABAPENTIN 100 MG 4 TIMES A DAY
  4. LEVOFLOXACIN. [Concomitant]
     Active Substance: LEVOFLOXACIN
     Indication: INFECTION
     Dosage: LEVOFLOXACIN 750 MG ONCE A DAY
  5. ASPIRIN. [Concomitant]
     Active Substance: ASPIRIN
     Indication: CARDIAC DISORDER
     Dosage: ASPIRIN 81 MG
  6. TOLTERODINE [Concomitant]
     Active Substance: TOLTERODINE
     Indication: BLADDER DISORDER
     Dosage: TOLTERODINE TARTARATE 4 MG ONCE A DAY
  7. LOSARTAN. [Suspect]
     Active Substance: LOSARTAN
     Indication: PRODUCT USED FOR UNKNOWN INDICATION
     Dosage: LOSARTAN POTASSIUM 100 MG TABLETS

REACTIONS (3)
  - Enteritis infectious [Unknown]
  - Bedridden [Unknown]
  - Limb injury [Unknown]
